FAERS Safety Report 16074040 (Version 2)
Quarter: 2019Q1

REPORT INFORMATION
  Report Type: Spontaneous
  Country: NL (occurrence: NL)
  Receive Date: 20190314
  Receipt Date: 20190321
  Transmission Date: 20190418
  Serious: No
  Sender: FDA-Public Use
  Company Number: NL-B.I. PHARMACEUTICALS,INC./RIDGEFIELD-2019-12-000819

PATIENT
  Age: 68 Year
  Sex: Female

DRUGS (1)
  1. SPIRIVA [Suspect]
     Active Substance: TIOTROPIUM BROMIDE MONOHYDRATE
     Indication: DYSPNOEA
     Dosage: 1DD2
     Route: 065
     Dates: start: 20181218, end: 20190129

REACTIONS (6)
  - Hypertension [Unknown]
  - Chest pain [Recovered/Resolved]
  - Chest pain [Recovered/Resolved]
  - Hypertension [Unknown]
  - Chest discomfort [Recovered/Resolved]
  - Chest discomfort [Recovered/Resolved]

NARRATIVE: CASE EVENT DATE: 20181222
